FAERS Safety Report 5363079-9 (Version None)
Quarter: 2007Q2

REPORT INFORMATION
  Report Type: 
  Country: None (occurrence: None)
  Receive Date: 20070615
  Receipt Date: 20070601
  Transmission Date: 20071010
  Serious: Yes (Disabling, Other)
  Sender: FDA-Public Use
  Company Number: TAP2005Q00566

PATIENT
  Age: 37 Year
  Sex: Female

DRUGS (1)
  1. LUPRON DEPOT-3 [Suspect]
     Indication: ENDOMETRIOSIS
     Dosage: 11.25 MG, ONCE, INTRAMUSCULAR
     Route: 030
     Dates: start: 20041214, end: 20041214

REACTIONS (33)
  - ANXIETY [None]
  - APHONIA [None]
  - ARTHRALGIA [None]
  - BACK PAIN [None]
  - BONE PAIN [None]
  - CHEST PAIN [None]
  - CONFUSIONAL STATE [None]
  - CYST [None]
  - DELUSION [None]
  - DEPRESSION [None]
  - DIZZINESS [None]
  - DYSPHASIA [None]
  - FATIGUE [None]
  - GASTROOESOPHAGEAL REFLUX DISEASE [None]
  - HALLUCINATIONS, MIXED [None]
  - HEADACHE [None]
  - HEART RATE INCREASED [None]
  - HIATUS HERNIA [None]
  - HOT FLUSH [None]
  - HYPERACUSIS [None]
  - LIBIDO DECREASED [None]
  - MIGRAINE [None]
  - MUSCLE SPASMS [None]
  - NIGHT SWEATS [None]
  - OESOPHAGEAL DISORDER [None]
  - PAIN [None]
  - PALPITATIONS [None]
  - PHOTOSENSITIVITY REACTION [None]
  - RENAL PAIN [None]
  - SKIN DISORDER [None]
  - SUICIDAL IDEATION [None]
  - VISION BLURRED [None]
  - VISUAL DISTURBANCE [None]
